FAERS Safety Report 16029789 (Version 2)
Quarter: 2019Q3

REPORT INFORMATION
  Report Type: Spontaneous
  Country: US (occurrence: US)
  Receive Date: 20190304
  Receipt Date: 20190905
  Transmission Date: 20191004
  Serious: No
  Sender: FDA-Public Use
  Company Number: US-MYLANLABS-2019M1013561

PATIENT
  Sex: Female

DRUGS (1)
  1. FENTANYL TRANSDERMAL SYSTEM [Suspect]
     Active Substance: FENTANYL
     Indication: COMPLEX REGIONAL PAIN SYNDROME
     Dosage: 1 DOSAGE FORM, Q3D
     Route: 062
     Dates: start: 20190117

REACTIONS (6)
  - Hyperhidrosis [Not Recovered/Not Resolved]
  - Application site erythema [Recovered/Resolved]
  - Application site pain [Unknown]
  - Wrong technique in product usage process [Recovered/Resolved]
  - Product adhesion issue [Unknown]
  - Discomfort [Not Recovered/Not Resolved]
